FAERS Safety Report 24992413 (Version 1)
Quarter: 2025Q1

REPORT INFORMATION
  Report Type: Report from Study
  Country: FR (occurrence: FR)
  Receive Date: 20250220
  Receipt Date: 20250220
  Transmission Date: 20250409
  Serious: Yes (Hospitalization, Other)
  Sender: ABBVIE
  Company Number: FR-ABBVIE-6138703

PATIENT
  Age: 67 Year
  Sex: Female

DRUGS (3)
  1. CARBIDOPA\LEVODOPA [Suspect]
     Active Substance: CARBIDOPA\LEVODOPA
     Indication: Product used for unknown indication
     Route: 050
     Dates: start: 20231103
  2. CARBIDOPA\LEVODOPA [Suspect]
     Active Substance: CARBIDOPA\LEVODOPA
  3. AMANTADINE HYDROCHLORIDE [Suspect]
     Active Substance: AMANTADINE HYDROCHLORIDE
     Indication: Product used for unknown indication
     Route: 065
     Dates: end: 20250131

REACTIONS (5)
  - Cataract [Not Recovered/Not Resolved]
  - Thrombosis [Not Recovered/Not Resolved]
  - Hallucination [Not Recovered/Not Resolved]
  - Dyskinesia [Recovering/Resolving]
  - Stoma site hypergranulation [Unknown]

NARRATIVE: CASE EVENT DATE: 20250131
